FAERS Safety Report 10524530 (Version 1)
Quarter: 2014Q4

REPORT INFORMATION
  Report Type: Spontaneous
  Country: US (occurrence: US)
  Receive Date: 20141017
  Receipt Date: 20141017
  Transmission Date: 20150528
  Serious: No
  Sender: FDA-Public Use
  Company Number: US-PFIZER INC-2014285918

PATIENT
  Age: 55 Year
  Sex: Male
  Weight: 90.7 kg

DRUGS (2)
  1. AMLODIPINE BESILATE/BENAZEPRIL HYDROCHLORIDE [Concomitant]
     Indication: HYPERTENSION
     Dosage: NIGHTLY
  2. ADVIL CONGESTION RELIEF [Suspect]
     Active Substance: IBUPROFEN\PHENYLEPHRINE HYDROCHLORIDE
     Indication: SINUS CONGESTION
     Dosage: ONE TABLET EVERY FOUR TO SIX HOURS. IBUPROFEN 200MG/NASAL DECONGESTANT 10MG
     Dates: start: 20141013, end: 20141013

REACTIONS (1)
  - Dizziness [Not Recovered/Not Resolved]

NARRATIVE: CASE EVENT DATE: 20141014
